FAERS Safety Report 9206295 (Version 2)
Quarter: 2013Q2

REPORT INFORMATION
  Report Type: Report from Study
  Country: MX (occurrence: MX)
  Receive Date: 20130403
  Receipt Date: 20130418
  Transmission Date: 20140414
  Serious: Yes (Other)
  Sender: FDA-Public Use
  Company Number: PHHY2013MX031942

PATIENT
  Age: 77 Year
  Sex: Male

DRUGS (6)
  1. EXELON PATCH [Suspect]
     Indication: PARKINSON^S DISEASE
     Dosage: 9.5 MG, UNK
     Route: 062
     Dates: start: 201203, end: 201303
  2. SECOTEX OCAS [Concomitant]
     Dosage: 01 DF, UNK
     Route: 048
     Dates: start: 201303
  3. VITAMIN C [Concomitant]
     Dosage: 01 DF, UNK
  4. CENTRUM [Concomitant]
     Dosage: 01 DF, UNK
     Dates: start: 201103
  5. MOTILIUM M [Concomitant]
     Dosage: 001 DF, UNK
  6. LISINOPRIL [Concomitant]
     Dosage: 01 DF, UNK
     Dates: start: 201205

REACTIONS (3)
  - Progressive supranuclear palsy [Not Recovered/Not Resolved]
  - Condition aggravated [Not Recovered/Not Resolved]
  - Drug ineffective [Unknown]
